FAERS Safety Report 9834004 (Version 3)
Quarter: 2014Q1

REPORT INFORMATION
  Report Type: Report from Study
  Country: DE (occurrence: DE)
  Receive Date: 20140122
  Receipt Date: 20140315
  Transmission Date: 20141002
  Serious: Yes (Hospitalization)
  Sender: FDA-Public Use
  Company Number: DE-ROCHE-1336565

PATIENT
  Age: 83 Year
  Sex: Female

DRUGS (6)
  1. RANIBIZUMAB [Suspect]
     Indication: AGE-RELATED MACULAR DEGENERATION
     Route: 050
     Dates: start: 20121108
  2. RANIBIZUMAB [Suspect]
     Route: 050
     Dates: start: 20140109
  3. INSIDON [Concomitant]
  4. SIMVASTATIN [Concomitant]
  5. IRBESARTAN [Concomitant]
  6. HYDROCHLOROTHIAZIDE [Concomitant]

REACTIONS (3)
  - Transient ischaemic attack [Recovering/Resolving]
  - Retinal oedema [Unknown]
  - Visual acuity reduced [Unknown]
